FAERS Safety Report 6494766-7 (Version None)
Quarter: 2009Q4

REPORT INFORMATION
  Report Type: 
  Country: None (occurrence: None)
  Receive Date: 20091214
  Receipt Date: 20090320
  Transmission Date: 20100525
  Serious: No
  Sender: FDA-Public Use
  Company Number: US-BRISTOL-MYERS SQUIBB COMPANY-14557326

PATIENT
  Age: 23 Year
  Sex: Female

DRUGS (3)
  1. ABILIFY [Suspect]
     Indication: BIPOLAR DISORDER
     Dosage: STARTED AT DOSE OF 20MG DECREASED TO 15MG, THEN 10MG
  2. DEPAKOTE [Concomitant]
  3. ZARONTIN [Concomitant]

REACTIONS (2)
  - TONGUE DISORDER [None]
  - TREMOR [None]
